FAERS Safety Report 5883196-4 (Version None)
Quarter: 2008Q3

REPORT INFORMATION
  Report Type: 
  Country: None (occurrence: None)
  Receive Date: 20080915
  Receipt Date: 20080908
  Transmission Date: 20090109
  Serious: Yes (Hospitalization)
  Sender: FDA-Public Use
  Company Number: PHHO2007FR08352

PATIENT
  Sex: Male
  Weight: 105 kg

DRUGS (3)
  1. TASIGNA [Suspect]
     Indication: CHRONIC MYELOID LEUKAEMIA
     Dosage: 800MG
     Route: 048
     Dates: start: 20070425, end: 20070507
  2. DIFFU K [Concomitant]
     Indication: HYPOKALAEMIA
  3. DUPHALAC [Concomitant]
     Indication: HYPOKALAEMIA

REACTIONS (4)
  - CONSTIPATION [None]
  - HYPOKALAEMIA [None]
  - INTESTINAL OBSTRUCTION [None]
  - PYREXIA [None]
